FAERS Safety Report 18116309 (Version 2)
Quarter: 2021Q4

REPORT INFORMATION
  Report Type: Spontaneous
  Country: US (occurrence: US)
  Receive Date: 20200805
  Receipt Date: 20211222
  Transmission Date: 20220303
  Serious: Yes (Other)
  Sender: FDA-Public Use
  Company Number: US-TAKEDA-2020TUS033392

PATIENT
  Age: 69 Year
  Sex: Male
  Weight: 61.678 kg

DRUGS (3)
  1. NINLARO [Suspect]
     Active Substance: IXAZOMIB CITRATE
     Indication: Hyperkalaemia
     Dosage: 3 MILLIGRAM
     Route: 048
     Dates: start: 20181003
  2. NINLARO [Suspect]
     Active Substance: IXAZOMIB CITRATE
     Indication: Hepatitis B
     Dosage: 3 MILLIGRAM
     Route: 048
     Dates: start: 20200803
  3. NINLARO [Suspect]
     Active Substance: IXAZOMIB CITRATE
     Indication: Plasma cell myeloma

REACTIONS (3)
  - Neuropathy peripheral [Unknown]
  - Insomnia [Unknown]
  - Off label use [Unknown]

NARRATIVE: CASE EVENT DATE: 20200803
